FAERS Safety Report 5188372-4 (Version None)
Quarter: 2006Q4

REPORT INFORMATION
  Report Type: 
  Country: None (occurrence: None)
  Receive Date: 20061214
  Receipt Date: 20061201
  Transmission Date: 20070319
  Serious: Yes (Other)
  Sender: FDA-Public Use
  Company Number: 2006133595

PATIENT
  Sex: Male
  Weight: 15.2862 kg

DRUGS (2)
  1. GENOTROPIN [Suspect]
     Indication: GROWTH HORMONE DEFICIENCY
     Dosage: 1 MG (1 MG, DAILY), SUBCUTANEOUS
     Route: 058
     Dates: start: 20040601
  2. SYNTHROID [Concomitant]

REACTIONS (2)
  - PSYCHOMOTOR HYPERACTIVITY [None]
  - UNEVALUABLE EVENT [None]
